FAERS Safety Report 4669586-6 (Version None)
Quarter: 2005Q2

REPORT INFORMATION
  Report Type: 
  Country: None (occurrence: None)
  Receive Date: 20050523
  Receipt Date: 20050517
  Transmission Date: 20051028
  Serious: Yes (Hospitalization, Other)
  Sender: FDA-Public Use
  Company Number: PHNU2005DE01966

PATIENT
  Age: 53 Year
  Sex: Female

DRUGS (1)
  1. LEPONEX / CLOZARIL (CLOZAPINE) [Suspect]
     Indication: SCHIZOPHRENIA, CATATONIC TYPE
     Dosage: UP TO 500MG/DAY
     Route: 048
     Dates: start: 19990901

REACTIONS (2)
  - COGNITIVE DISORDER [None]
  - SOMATOSENSORY EVOKED POTENTIALS ABNORMAL [None]
